FAERS Safety Report 8439393-7 (Version None)
Quarter: 2012Q2

REPORT INFORMATION
  Report Type: 
  Country: None (occurrence: None)
  Receive Date: 20120615
  Receipt Date: 20120613
  Transmission Date: 20120825
  Serious: Yes (Death, Hospitalization, Other)
  Sender: FDA-Public Use
  Company Number: PHHY2012MY029885

PATIENT
  Age: 43 Year
  Sex: Male

DRUGS (1)
  1. IMATINIB MESYLATE [Suspect]
     Indication: CHRONIC MYELOID LEUKAEMIA
     Dosage: 400 MG, DAILY

REACTIONS (6)
  - PLATELET COUNT DECREASED [None]
  - BLAST CRISIS IN MYELOGENOUS LEUKAEMIA [None]
  - MALAISE [None]
  - PAIN [None]
  - DEATH [None]
  - HAEMORRHAGE INTRACRANIAL [None]
